FAERS Safety Report 4492420-4 (Version None)
Quarter: 2004Q4

REPORT INFORMATION
  Report Type: 
  Country: None (occurrence: None)
  Receive Date: 20041102
  Receipt Date: 20041102
  Transmission Date: 20050328
  Serious: No
  Sender: FDA-Public Use
  Company Number: None

PATIENT
  Age: 55 Year
  Sex: Female

DRUGS (5)
  1. CIMETIDINE [Suspect]
     Dosage: BID
     Dates: start: 20040825, end: 20041024
  2. CYCLOBENZAPRINE [Concomitant]
  3. LISINOPRIL [Concomitant]
  4. NAPROXEN [Concomitant]
  5. FUROSEMIDE [Concomitant]

REACTIONS (3)
  - DRUG EFFECT DECREASED [None]
  - GASTRIC DISORDER [None]
  - PHARMACEUTICAL PRODUCT COMPLAINT [None]
